FAERS Safety Report 4382096-9 (Version None)
Quarter: 2004Q2

REPORT INFORMATION
  Report Type: 
  Country: None (occurrence: None)
  Receive Date: 20040615
  Receipt Date: 20040603
  Transmission Date: 20050107
  Serious: Yes (Hospitalization)
  Sender: FDA-Public Use
  Company Number: 04P-163-0262702-00

PATIENT
  Age: 60 Year
  Sex: Male

DRUGS (12)
  1. HUMIRA [Suspect]
     Indication: RHEUMATOID ARTHRITIS
     Dosage: 40 MG, 1 IN 2 WK, SUBCUTANEOUS
     Route: 058
     Dates: start: 20030101, end: 20040429
  2. MULTI-VITAMINS [Concomitant]
  3. HYDROXYCHLOROQUINE PHOSPHATE [Concomitant]
  4. METHOTREXATE [Concomitant]
  5. SULFASALAZINE [Concomitant]
  6. NAPROXEN [Concomitant]
  7. FLUTICASONE PROPIONATE [Concomitant]
  8. FOLIC ACID [Concomitant]
  9. PREDNISONE [Concomitant]
  10. LEVOTHYROXINE SODIUM [Concomitant]
  11. ATENOLOL [Concomitant]
  12. ZOLMITRIPTAN [Concomitant]

REACTIONS (1)
  - PROSTATE CANCER [None]
